FAERS Safety Report 6521103-1 (Version None)
Quarter: 2009Q4

REPORT INFORMATION
  Report Type: 
  Country: None (occurrence: None)
  Receive Date: 20091222
  Receipt Date: 20091208
  Transmission Date: 20100525
  Serious: Yes (Hospitalization)
  Sender: FDA-Public Use
  Company Number: 2009120022

PATIENT
  Age: 57 Year
  Sex: Female

DRUGS (1)
  1. PENICILLAMINE [Suspect]
     Indication: SYSTEMIC SCLEROSIS

REACTIONS (7)
  - COLLAPSE OF LUNG [None]
  - LUNG NEOPLASM MALIGNANT [None]
  - NECROSIS [None]
  - PLEURAL ADHESION [None]
  - PLEURAL EFFUSION [None]
  - RESPIRATORY DISORDER [None]
  - RESPIRATORY DISTRESS [None]
